FAERS Safety Report 4744326-0 (Version None)
Quarter: 2005Q3

REPORT INFORMATION
  Report Type: 
  Country: None (occurrence: None)
  Receive Date: 20050812
  Receipt Date: 20050511
  Transmission Date: 20060218
  Serious: Yes (Disabling, Other)
  Sender: FDA-Public Use
  Company Number: US-MERCK-0505USA01791

PATIENT
  Age: 36 Year
  Sex: Female
  Weight: 128 kg

DRUGS (3)
  1. VIOXX [Suspect]
     Indication: BACK PAIN
     Route: 048
     Dates: start: 20010101, end: 20040901
  2. VIOXX [Suspect]
     Indication: MIGRAINE
     Route: 048
     Dates: start: 20010101, end: 20040901
  3. PARLODEL [Concomitant]
     Indication: PITUITARY TUMOUR
     Route: 065

REACTIONS (11)
  - ABDOMINAL ABSCESS [None]
  - AMNESIA [None]
  - CHEST PAIN [None]
  - DEEP VEIN THROMBOSIS [None]
  - DIZZINESS [None]
  - GASTRIC BYPASS [None]
  - HYPOXIA [None]
  - PROCEDURAL COMPLICATION [None]
  - PULMONARY EMBOLISM [None]
  - SYSTEMIC LUPUS ERYTHEMATOSUS [None]
  - THROMBOSIS [None]
